FAERS Safety Report 22039570 (Version 1)
Quarter: 2023Q1

REPORT INFORMATION
  Report Type: Spontaneous
  Country: US (occurrence: US)
  Receive Date: 20230227
  Receipt Date: 20230227
  Transmission Date: 20230418
  Serious: No
  Sender: FDA-Public Use
  Company Number: US-SA-SAC20230227000252

PATIENT
  Age: 13 Year
  Sex: Male

DRUGS (4)
  1. DUPIXENT [Suspect]
     Active Substance: DUPILUMAB
     Indication: Dermatitis atopic
     Dosage: 200 MG, QOW
     Route: 058
     Dates: start: 20210319
  2. NORDITROPIN [Concomitant]
     Active Substance: SOMATROPIN
     Dosage: 15MG/1.5ML
  3. NORDITROPIN [Concomitant]
     Active Substance: SOMATROPIN
     Dosage: 30MG/3ML
  4. OMNITROPE [Concomitant]
     Active Substance: SOMATROPIN
     Dosage: 10MG/1.5ML CART 2=1

REACTIONS (2)
  - Impaired quality of life [Unknown]
  - Injection site pain [Not Recovered/Not Resolved]

NARRATIVE: CASE EVENT DATE: 20230222
